FAERS Safety Report 12838832 (Version 1)
Quarter: 2016Q4

REPORT INFORMATION
  Report Type: Spontaneous
  Country: US (occurrence: US)
  Receive Date: 20161012
  Receipt Date: 20161012
  Transmission Date: 20170207
  Serious: No
  Sender: FDA-Public Use
  Company Number: US-PFIZER INC-2016465773

PATIENT
  Age: 55 Year
  Sex: Female

DRUGS (1)
  1. IBRANCE [Suspect]
     Active Substance: PALBOCICLIB
     Indication: BREAST CANCER METASTATIC
     Dosage: 125 MG, CYCLIC (DAILY ON DAYS 1- 21 OF A 28 DAY CYCLE)
     Route: 048
     Dates: start: 201609

REACTIONS (2)
  - Fatigue [Recovering/Resolving]
  - White blood cell count decreased [Not Recovered/Not Resolved]
